FAERS Safety Report 20017407 (Version 1)
Quarter: 2021Q4

REPORT INFORMATION
  Report Type: Spontaneous
  Country: DE (occurrence: DE)
  Receive Date: 20211030
  Receipt Date: 20211030
  Transmission Date: 20220303
  Serious: Yes (Hospitalization)
  Sender: FDA-Public Use
  Company Number: DE-NOVARTISPH-NVSC2021DE248069

PATIENT
  Sex: Male
  Weight: 94 kg

DRUGS (6)
  1. PEGFILGRASTIM [Suspect]
     Active Substance: PEGFILGRASTIM
     Indication: Product used for unknown indication
     Dosage: 6 MG (STRENGTH: 6 MG)
     Route: 058
     Dates: start: 20210717, end: 20210717
  2. PEGFILGRASTIM [Suspect]
     Active Substance: PEGFILGRASTIM
     Dosage: 6 MG (STRENGTH: 6 MG)
     Route: 058
     Dates: start: 20210814, end: 20210814
  3. PEGFILGRASTIM [Suspect]
     Active Substance: PEGFILGRASTIM
     Dosage: 6 MG (STRENGTH: 6 MG)
     Route: 058
     Dates: start: 20210904, end: 20210904
  4. PEGFILGRASTIM [Suspect]
     Active Substance: PEGFILGRASTIM
     Dosage: 6 MG (STRENGTH: 6 MG)
     Route: 058
     Dates: start: 20210925, end: 20210925
  5. CISPLATIN [Suspect]
     Active Substance: CISPLATIN
     Indication: Product used for unknown indication
     Dosage: 120 MG
     Route: 042
     Dates: start: 20210622, end: 20210921
  6. PEMETREXED [Suspect]
     Active Substance: PEMETREXED
     Indication: Product used for unknown indication
     Dosage: 1000 MG
     Route: 042
     Dates: start: 20210622, end: 20210921

REACTIONS (1)
  - Vomiting [Recovered/Resolved]

NARRATIVE: CASE EVENT DATE: 20211006
